FAERS Safety Report 20213913 (Version 1)
Quarter: 2021Q4

REPORT INFORMATION
  Report Type: Spontaneous
  Country: US (occurrence: None)
  Receive Date: 20211221
  Receipt Date: 20211221
  Transmission Date: 20220303
  Serious: Yes (Hospitalization)
  Sender: FDA-Public Use
  Company Number: None

PATIENT
  Sex: Female

DRUGS (8)
  1. STELARA [Suspect]
     Active Substance: USTEKINUMAB
     Indication: Crohn^s disease
     Dosage: OTHER FREQUENCY : EVERY 8 WEEKS;?
     Route: 058
     Dates: start: 20180221
  2. AMITRIPTYLIN TAB 75MG [Concomitant]
  3. BOTOX [Concomitant]
     Active Substance: ONABOTULINUMTOXINA
  4. IMMUNE CHW SUPPORT [Concomitant]
  5. LEVOTHYROXIN TAB 100MCG [Concomitant]
  6. LIALDA [Concomitant]
     Active Substance: MESALAMINE
  7. PROBIOTIC CAP [Concomitant]
  8. RANITIDINE [Concomitant]
     Active Substance: RANITIDINE

REACTIONS (2)
  - Cerebrovascular accident [None]
  - COVID-19 pneumonia [None]
